FAERS Safety Report 6018175-X (Version None)
Quarter: 2008Q4

REPORT INFORMATION
  Report Type: 
  Country: None (occurrence: None)
  Receive Date: 20081223
  Receipt Date: 20081218
  Transmission Date: 20090506
  Serious: Yes (Other)
  Sender: FDA-Public Use
  Company Number: AU-AVENTIS-200816734EU

PATIENT
  Age: 87 Year
  Sex: Female
  Weight: 50 kg

DRUGS (11)
  1. LASIX [Suspect]
     Route: 048
  2. PLAVIX [Suspect]
     Route: 048
     Dates: start: 20061201
  3. ISOPTIN [Concomitant]
  4. MICARDIS [Concomitant]
  5. DIURETICS [Concomitant]
  6. VIT D [Concomitant]
  7. CALCIUM [Concomitant]
  8. SELENIUM-ACE [Concomitant]
  9. ARIMIDEX [Concomitant]
  10. ZASTEN [Concomitant]
  11. KETOFEN                            /00321701/ [Concomitant]

REACTIONS (3)
  - AORTIC ANEURYSM [None]
  - CARDIAC FAILURE CONGESTIVE [None]
  - PNEUMONIA [None]
